FAERS Safety Report 9386749 (Version 5)
Quarter: 2014Q3

REPORT INFORMATION
  Report Type: Spontaneous
  Country: US (occurrence: US)
  Receive Date: 20130708
  Receipt Date: 20140728
  Transmission Date: 20150326
  Serious: No
  Sender: FDA-Public Use
  Company Number: US-PFIZER INC-2013197626

PATIENT
  Age: 47 Year
  Sex: Female
  Weight: 59 kg

DRUGS (3)
  1. OXYCODONE/APAP [Concomitant]
     Active Substance: ACETAMINOPHEN\OXYCODONE HYDROCHLORIDE
     Dosage: UNK
  2. XALKORI [Suspect]
     Active Substance: CRIZOTINIB
     Indication: LUNG NEOPLASM MALIGNANT
     Dosage: 200 MG, 2X/DAY (1 CAPSULE TWICE A DAY)
     Route: 048
     Dates: start: 201304
  3. HYDROCODONE/ GG [Concomitant]
     Dosage: 2.5-300

REACTIONS (6)
  - Muscular weakness [Unknown]
  - Pain [Not Recovered/Not Resolved]
  - Hypoaesthesia [Not Recovered/Not Resolved]
  - Constipation [Not Recovered/Not Resolved]
  - Peripheral swelling [Not Recovered/Not Resolved]
  - Pain in extremity [Not Recovered/Not Resolved]
